FAERS Safety Report 8951631 (Version 1)
Quarter: 2012Q4

REPORT INFORMATION
  Report Type: 
  Country: US (occurrence: US)
  Receive Date: 20121204
  Receipt Date: 20121204
  Transmission Date: 20130627
  Serious: No
  Sender: FDA-Public Use
  Company Number: US-ASTRAZENECA-2012SE89526

PATIENT
  Age: 58 Year
  Sex: Male
  Weight: 68.9 kg

DRUGS (4)
  1. PRILOSEC [Suspect]
     Indication: HYPERCHLORHYDRIA
     Route: 048
     Dates: start: 201209
  2. UNSPECIFIED [Suspect]
     Route: 065
  3. FISH OIL [Concomitant]
  4. BLOOD PRESSURE MEDICINE [Concomitant]

REACTIONS (1)
  - Liver function test abnormal [Not Recovered/Not Resolved]
